FAERS Safety Report 9989356 (Version 1)
Quarter: 2014Q1

REPORT INFORMATION
  Report Type: Spontaneous
  Country: US (occurrence: None)
  Receive Date: 20140123
  Receipt Date: 20140123
  Transmission Date: 20141002
  Serious: Yes (Hospitalization)
  Sender: FDA-Public Use
  Company Number: UTC-039357

PATIENT
  Age: 28 Year
  Sex: Female
  Weight: 68.1 kg

DRUGS (2)
  1. REMODULIN (2.5 MILLIGRAM / MILLILITERS, INJECTION FOR INFUSION) (TREPROSTINIL SODIUM) [Suspect]
     Indication: PULMONARY ARTERIAL HYPERTENSION
     Dosage: 197.28 UG/KG (0.137 UG/KG ,1 IN 1 MIN) , INTRAVENOUS DRIP)
     Route: 041
     Dates: start: 20080320
  2. TRACLEER (BOSENTAN) UNKNOWN [Concomitant]

REACTIONS (1)
  - Device related infection [None]
